FAERS Safety Report 24118990 (Version 1)
Quarter: 2024Q3

REPORT INFORMATION
  Report Type: Spontaneous
  Country: NL (occurrence: NL)
  Receive Date: 20240722
  Receipt Date: 20240722
  Transmission Date: 20241016
  Serious: Yes (Other)
  Sender: ACCORD
  Company Number: None

PATIENT
  Age: 40 Year
  Sex: Male
  Weight: 80 kg

DRUGS (1)
  1. OXYBUTYNIN [Suspect]
     Active Substance: OXYBUTYNIN\OXYBUTYNIN CHLORIDE
     Indication: Hyperhidrosis
     Dosage: 5MG, 1X0.5 HALF A TABLET PER DAY
     Dates: start: 20220501

REACTIONS (1)
  - Oesophageal stenosis [Not Recovered/Not Resolved]
